FAERS Safety Report 7373303-9 (Version None)
Quarter: 2011Q1

REPORT INFORMATION
  Report Type: 
  Country: None (occurrence: None)
  Receive Date: 20110324
  Receipt Date: 20110322
  Transmission Date: 20110831
  Serious: No
  Sender: FDA-Public Use
  Company Number: CA-ABBOTT-11P-028-0704545-00

PATIENT
  Sex: Female
  Weight: 62.652 kg

DRUGS (8)
  1. TRAVATAN [Concomitant]
     Indication: GLAUCOMA
     Dosage: 1 IN 1 DAY, 1 DROP PER EYE
     Route: 047
     Dates: start: 20030101
  2. CENTRUM MULTIVITAMIN [Concomitant]
     Indication: VITAMIN SUPPLEMENTATION
     Route: 048
     Dates: start: 20050101
  3. HUMIRA [Suspect]
     Indication: CROHN'S DISEASE
     Route: 058
     Dates: start: 20100917
  4. PANTOPRAZOL [Concomitant]
     Indication: GASTRIC DISORDER
     Route: 048
     Dates: start: 20060101
  5. CALTRATE [Concomitant]
     Indication: MINERAL SUPPLEMENTATION
     Route: 048
     Dates: start: 20050101
  6. CITALOPRAM HYDROPROMIDE [Concomitant]
     Indication: PRODUCT USED FOR UNKNOWN INDICATION
     Dosage: 2.5 TAB A DAY
     Route: 048
     Dates: start: 20110101
  7. BUDESONIDE [Concomitant]
     Indication: INFLAMMATION
     Route: 048
     Dates: start: 20060101
  8. VITAMIN B-12 [Concomitant]
     Indication: VITAMIN SUPPLEMENTATION
     Route: 058
     Dates: start: 19960101

REACTIONS (4)
  - OCULAR HYPERAEMIA [None]
  - SINUS DISORDER [None]
  - EYE SWELLING [None]
  - ENTEROCUTANEOUS FISTULA [None]
